FAERS Safety Report 20356908 (Version 1)
Quarter: 2022Q1

REPORT INFORMATION
  Report Type: Spontaneous
  Country: US (occurrence: US)
  Receive Date: 20220120
  Receipt Date: 20220120
  Transmission Date: 20220423
  Serious: No
  Sender: FDA-Public Use
  Company Number: US-SA-SAC20220117000967

PATIENT
  Age: 73 Year
  Sex: Female

DRUGS (10)
  1. CAPRELSA [Suspect]
     Active Substance: VANDETANIB
     Indication: Thyroid cancer
     Dosage: 300 MG, QD
     Route: 048
  2. CAPRELSA [Suspect]
     Active Substance: VANDETANIB
     Dosage: 100 MG, QD
  3. CAPRELSA [Suspect]
     Active Substance: VANDETANIB
     Dosage: 300 MG
  4. ATENOLOL [Concomitant]
     Active Substance: ATENOLOL
  5. LEVOTHYROXINE [Concomitant]
     Active Substance: LEVOTHYROXINE
  6. ATORVASTATIN [Concomitant]
     Active Substance: ATORVASTATIN
  7. IMODIUM [Concomitant]
     Active Substance: LOPERAMIDE HYDROCHLORIDE
  8. COLESTIPOL [Concomitant]
     Active Substance: COLESTIPOL
  9. HYDRALLAZINE [HYDRALAZINE HYDROCHLORIDE] [Concomitant]
  10. CALCITRIOL [Concomitant]
     Active Substance: CALCITRIOL

REACTIONS (1)
  - Diarrhoea [Unknown]
